FAERS Safety Report 5126135-6 (Version None)
Quarter: 2006Q3

REPORT INFORMATION
  Report Type: 
  Country: None (occurrence: None)
  Receive Date: 20060823
  Receipt Date: 20060405
  Transmission Date: 20061208
  Serious: Yes (Other)
  Sender: FDA-Public Use
  Company Number: 2006047397

PATIENT
  Age: 60 Year
  Sex: Male
  Weight: 92.9874 kg

DRUGS (1)
  1. NORVASC [Suspect]
     Indication: HYPERTENSION
     Dosage: 10 MG (10 MG, DAILY), UNKNOWN

REACTIONS (8)
  - CONSTIPATION [None]
  - DEHYDRATION [None]
  - DRUG INTOLERANCE [None]
  - DRY MOUTH [None]
  - DYSPNOEA [None]
  - FLUSHING [None]
  - ILL-DEFINED DISORDER [None]
  - MICTURITION DISORDER [None]
